FAERS Safety Report 5748815-1 (Version None)
Quarter: 2008Q2

REPORT INFORMATION
  Report Type: 
  Country: None (occurrence: None)
  Receive Date: 20080522
  Receipt Date: 20080505
  Transmission Date: 20081010
  Serious: Yes (Other)
  Sender: FDA-Public Use
  Company Number: 2008AL003378

PATIENT
  Age: 65 Year
  Sex: Male

DRUGS (1)
  1. DIGOXIN [Suspect]
     Indication: ATRIAL FIBRILLATION
     Dosage: 0.25 MG DAILY PO
     Route: 048

REACTIONS (6)
  - ATRIAL FIBRILLATION [None]
  - BLINDNESS [None]
  - DIZZINESS [None]
  - HEART RATE DECREASED [None]
  - HEMIPLEGIA [None]
  - SPEECH DISORDER [None]
